FAERS Safety Report 9876410 (Version 4)
Quarter: 2016Q1

REPORT INFORMATION
  Report Type: Other
  Country: US (occurrence: US)
  Receive Date: 20140206
  Receipt Date: 20160229
  Transmission Date: 20160526
  Serious: No
  Sender: FDA-Public Use
  Company Number: US-ACORDA-ACO_37502_2013

PATIENT
  Age: 68 Year
  Sex: Female
  Weight: 81.63 kg

DRUGS (4)
  1. B-FUEL [Concomitant]
     Indication: SUPPLEMENTATION THERAPY
  2. DETROL [Concomitant]
     Active Substance: TOLTERODINE TARTRATE
     Indication: PRODUCT USED FOR UNKNOWN INDICATION
     Dosage: UNK
     Route: 065
  3. AMPYRA [Suspect]
     Active Substance: DALFAMPRIDINE
     Indication: PRIMARY PROGRESSIVE MULTIPLE SCLEROSIS
     Dosage: 10 MG, BID
     Route: 065
     Dates: start: 20130513
  4. AMPYRA [Suspect]
     Active Substance: DALFAMPRIDINE
     Dosage: 10 MG, BID
     Route: 048

REACTIONS (9)
  - Limb discomfort [Not Recovered/Not Resolved]
  - Peripheral swelling [Unknown]
  - Muscular weakness [Not Recovered/Not Resolved]
  - Therapeutic response unexpected [Unknown]
  - Dysstasia [Not Recovered/Not Resolved]
  - Vitamin B complex deficiency [Recovered/Resolved]
  - Gait disturbance [Unknown]
  - Multiple sclerosis [Not Recovered/Not Resolved]
  - Drug ineffective [Unknown]

NARRATIVE: CASE EVENT DATE: 2013
